FAERS Safety Report 8529590-4 (Version None)
Quarter: 2012Q3

REPORT INFORMATION
  Report Type: 
  Country: None (occurrence: None)
  Receive Date: 20120717
  Receipt Date: 20120717
  Transmission Date: 20120928
  Serious: No
  Sender: FDA-Public Use
  Company Number: None

PATIENT
  Sex: Female

DRUGS (1)
  1. CLINDAMYCIN HYDROCHLORIDE [Suspect]
     Indication: CHRONIC SINUSITIS
     Dosage: 300 MG. BID ORALLY (047)
     Route: 048
     Dates: start: 20120613, end: 20120619

REACTIONS (2)
  - RASH [None]
  - SKIN EXFOLIATION [None]
